FAERS Safety Report 9863759 (Version 1)
Quarter: 2014Q1

REPORT INFORMATION
  Report Type: Spontaneous
  Country: FR (occurrence: FR)
  Receive Date: 20140203
  Receipt Date: 20140203
  Transmission Date: 20141002
  Serious: Yes (Other)
  Sender: FDA-Public Use
  Company Number: FR-UCBSA-110787

PATIENT
  Age: 68 Year
  Sex: Female

DRUGS (4)
  1. VIMPAT [Suspect]
     Indication: EPILEPSY
     Dosage: 50 MG
     Route: 048
     Dates: start: 201311
  2. KEPPRA [Suspect]
     Indication: EPILEPSY
     Dosage: 500 MG
     Route: 048
     Dates: start: 2013
  3. DEPAKINE [Suspect]
     Indication: EPILEPSY
     Dosage: UNKNOWN DOSE
     Route: 048
  4. TEMODAL [Concomitant]
     Indication: TUMOUR INVASION
     Route: 048

REACTIONS (2)
  - Dermatitis exfoliative [Recovered/Resolved]
  - Drug ineffective [Recovered/Resolved]
